FAERS Safety Report 16563791 (Version 2)
Quarter: 2019Q3

REPORT INFORMATION
  Report Type: Spontaneous
  Country: JP (occurrence: JP)
  Receive Date: 20190712
  Receipt Date: 20190715
  Transmission Date: 20191004
  Serious: Yes (Hospitalization, Other)
  Sender: FDA-Public Use
  Company Number: JP-AMGEN-JPNSP2019109640

PATIENT
  Age: 76 Year
  Sex: Female

DRUGS (1)
  1. PRALIA [Suspect]
     Active Substance: DENOSUMAB
     Indication: PRODUCT USED FOR UNKNOWN INDICATION
     Dosage: 60 MILLIGRAM, 5 TIMES
     Route: 065
     Dates: end: 20190622

REACTIONS (8)
  - Cardiac failure [Not Recovered/Not Resolved]
  - C-reactive protein increased [Unknown]
  - PO2 decreased [Not Recovered/Not Resolved]
  - Cardiac failure [Unknown]
  - Nausea [Unknown]
  - Tooth loss [Unknown]
  - Decreased appetite [Not Recovered/Not Resolved]
  - Pyrexia [Unknown]

NARRATIVE: CASE EVENT DATE: 2016
